FAERS Safety Report 4354564-7 (Version None)
Quarter: 2004Q2

REPORT INFORMATION
  Report Type: 
  Country: None (occurrence: None)
  Receive Date: 20040506
  Receipt Date: 20040506
  Transmission Date: 20050107
  Serious: Yes (Life-Threatening, Hospitalization)
  Sender: FDA-Public Use
  Company Number: None

PATIENT
  Age: 37 Year
  Sex: Male
  Weight: 81.6475 kg

DRUGS (3)
  1. LEXAPRO [Suspect]
     Indication: DEPRESSION
     Dosage: 10 ,20 MG DAY ORAL
     Route: 048
     Dates: start: 20040329, end: 20040413
  2. LEXAPRO [Suspect]
     Indication: DEPRESSION
     Dosage: 10 ,20 MG DAY ORAL
     Route: 048
     Dates: start: 20040414, end: 20040419
  3. , [Concomitant]

REACTIONS (21)
  - ABNORMAL BEHAVIOUR [None]
  - ACTIVITIES OF DAILY LIVING IMPAIRED [None]
  - ANXIETY [None]
  - CRYING [None]
  - DYSPHONIA [None]
  - EUPHORIC MOOD [None]
  - FEELING ABNORMAL [None]
  - IMPAIRED WORK ABILITY [None]
  - IRRITABILITY [None]
  - JAW DISORDER [None]
  - LOSS OF CONSCIOUSNESS [None]
  - MENTAL DISORDER [None]
  - MYDRIASIS [None]
  - NERVOUSNESS [None]
  - PARAESTHESIA [None]
  - PHOTOSENSITIVITY REACTION [None]
  - RESPIRATORY ARREST [None]
  - SUICIDAL IDEATION [None]
  - SUICIDE ATTEMPT [None]
  - TREMOR [None]
  - VISION BLURRED [None]
